FAERS Safety Report 13403469 (Version 6)
Quarter: 2017Q2

REPORT INFORMATION
  Report Type: Spontaneous
  Country: US (occurrence: US)
  Receive Date: 20170404
  Receipt Date: 20170614
  Transmission Date: 20170830
  Serious: Yes (Other)
  Sender: FDA-Public Use
  Company Number: GXBR2017US001286

PATIENT
  Sex: Male
  Weight: 105.21 kg

DRUGS (6)
  1. MYFORTIC [Suspect]
     Active Substance: MYCOPHENOLATE SODIUM
     Indication: PRODUCT USED FOR UNKNOWN INDICATION
     Dosage: UNK DF, UNK
     Route: 065
  2. INSULIN [Suspect]
     Active Substance: INSULIN NOS
     Indication: PRODUCT USED FOR UNKNOWN INDICATION
     Dosage: UNK DF, UNK
     Route: 065
  3. VORICONAZOLE. [Suspect]
     Active Substance: VORICONAZOLE
     Indication: EAR INFECTION FUNGAL
     Dosage: UNK DF, UNK
     Route: 065
     Dates: start: 2016
  4. PROGRAF [Suspect]
     Active Substance: TACROLIMUS\TACROLIMUS ANHYDROUS
     Indication: PROPHYLAXIS AGAINST TRANSPLANT REJECTION
     Dosage: UNK DF, UNK
     Route: 065
  5. METHOTREXATE SODIUM. [Suspect]
     Active Substance: METHOTREXATE SODIUM
     Indication: ARTHRITIS
     Dosage: UNK DF, UNK
     Route: 065
     Dates: start: 2016
  6. CLONIDINE. [Suspect]
     Active Substance: CLONIDINE
     Indication: BLOOD PRESSURE MEASUREMENT
     Dosage: UNK DF, UNK
     Route: 065

REACTIONS (7)
  - Aggression [Recovered/Resolved]
  - Memory impairment [Unknown]
  - Delusion [Recovered/Resolved]
  - Abnormal behaviour [Recovered/Resolved]
  - Drug interaction [Recovered/Resolved]
  - Somnolence [Unknown]
  - Mastoiditis [Not Recovered/Not Resolved]

NARRATIVE: CASE EVENT DATE: 2016
